FAERS Safety Report 10233765 (Version 1)
Quarter: 2014Q2

REPORT INFORMATION
  Report Type: Spontaneous
  Country: IT (occurrence: IT)
  Receive Date: 20140612
  Receipt Date: 20140612
  Transmission Date: 20141212
  Serious: Yes (Hospitalization)
  Sender: FDA-Public Use
  Company Number: IT-WATSON-2014-12222

PATIENT
  Age: 31 Year
  Sex: Female

DRUGS (2)
  1. LORAZEPAM (UNKNOWN) [Suspect]
     Indication: ANXIETY
     Dosage: 20  MG, UNK
     Route: 048
     Dates: start: 19970605, end: 20120605
  2. RIVOTRIL [Suspect]
     Indication: ANXIETY
     Dosage: 8 MG, UNK
     Route: 048
     Dates: start: 20120405, end: 20120605

REACTIONS (1)
  - Drug dependence [Recovering/Resolving]
